FAERS Safety Report 5644137-8 (Version None)
Quarter: 2008Q1

REPORT INFORMATION
  Report Type: 
  Country: None (occurrence: None)
  Receive Date: 20080227
  Receipt Date: 20080215
  Transmission Date: 20080703
  Serious: Yes (Hospitalization, Disabling)
  Sender: FDA-Public Use
  Company Number: WAES 0711USA02043

PATIENT
  Age: 56 Year
  Weight: 68.0396 kg

DRUGS (28)
  1. CAP VORINOSTAT 100 MG [Suspect]
     Indication: NON-SMALL CELL LUNG CANCER
     Dosage: 200 MG/BID/PO
     Route: 048
     Dates: start: 20070710, end: 20071025
  2. TAB ERLOTINIB HYDROCHLORIDE 150 MG [Suspect]
     Indication: NON-SMALL CELL LUNG CANCER
     Dosage: DAILY/PO
     Route: 048
     Dates: start: 20070710, end: 20071024
  3. ATIVAN [Suspect]
     Indication: ANXIETY
     Dosage: 1 MG/TID
     Dates: start: 20071031, end: 20071102
  4. FENTANYL [Suspect]
     Indication: BACK PAIN
     Dosage: 1 MG/1X
     Dates: start: 20071026, end: 20071026
  5. FENTANYL [Suspect]
     Indication: PAIN IN EXTREMITY
     Dosage: 1 MG/1X
     Dates: start: 20071026, end: 20071026
  6. VERSED [Suspect]
     Indication: BACK PAIN
     Dosage: 1 MG/1X/IM
     Route: 030
     Dates: start: 20071026, end: 20071026
  7. INJ ELECTROLYTES (UNSPECIFIED) + SODIUM LACTATE UNK [Suspect]
     Indication: BACK PAIN
     Dosage: 200 ML/1X/IM
     Route: 030
     Dates: start: 20071026, end: 20071026
  8. LIDOCAINE [Suspect]
     Indication: BACK PAIN
     Dates: start: 20071026, end: 20071026
  9. INJ BUPIVACAINE HYDROCHLORIDE + TRIAMCINOLONE ACETONIDE UNK [Suspect]
     Indication: BACK PAIN
     Dosage: 4 MCG/4 CC/1X/IM
     Route: 030
     Dates: start: 20071026, end: 20071026
  10. ALTACE [Concomitant]
  11. CENTRUM SILVER [Concomitant]
  12. ACETAMINOPHEN [Concomitant]
  13. HUMALOG [Concomitant]
  14. LOMOTIL [Concomitant]
  15. NPH INSULIN [Concomitant]
  16. SOMA [Concomitant]
  17. ZYRTEC-D 12 HOUR [Concomitant]
  18. ACETAMINOPHEN + (HYDROCODONE BI [Concomitant]
  19. ASCORBIC ACID [Concomitant]
  20. CARISOPRODOL [Concomitant]
  21. CLINDAMYCIN HCL [Concomitant]
  22. DOXYCYCLINE [Concomitant]
  23. FOLIC ACID [Concomitant]
  24. PRAVASTATIN SODIUM [Concomitant]
  25. PROCHLORPERAZINE MALEATE [Concomitant]
  26. TEA [Concomitant]
  27. TURMERIC [Concomitant]
  28. VITAMIN B [Concomitant]

REACTIONS (16)
  - ASTHENIA [None]
  - BACK PAIN [None]
  - DIARRHOEA [None]
  - DISEASE PROGRESSION [None]
  - DISORIENTATION [None]
  - DYSURIA [None]
  - FALL [None]
  - LOSS OF CONSCIOUSNESS [None]
  - MUSCLE SPASMS [None]
  - MUSCULAR WEAKNESS [None]
  - NAUSEA [None]
  - PAIN IN EXTREMITY [None]
  - TREMOR [None]
  - URINARY HESITATION [None]
  - URINARY RETENTION [None]
  - VOMITING [None]
